FAERS Safety Report 8849305 (Version 1)
Quarter: 2012Q4

REPORT INFORMATION
  Report Type: 
  Country: US (occurrence: US)
  Receive Date: 20121017
  Receipt Date: 20121017
  Transmission Date: 20130627
  Serious: Yes (Life-Threatening, Other)
  Sender: FDA-Public Use
  Company Number: US-NAPPMUNDI-DEU-2012-0009609

PATIENT

DRUGS (3)
  1. DILAUDID HP [Suspect]
     Indication: PAIN IN EXTREMITY
     Dosage: 2 mg, see text
     Route: 042
  2. MORPHINE SULFATE [Suspect]
     Indication: PAIN IN EXTREMITY
     Dosage: 2 mg, see text
     Route: 042
  3. DURAGESIC [Suspect]
     Indication: PAIN IN EXTREMITY
     Dosage: UNK
     Route: 062

REACTIONS (2)
  - Labelled drug-drug interaction medication error [Recovered/Resolved]
  - Unresponsive to stimuli [Recovered/Resolved]
